FAERS Safety Report 14240375 (Version 1)
Quarter: 2017Q4

REPORT INFORMATION
  Report Type: Spontaneous
  Country: US (occurrence: US)
  Receive Date: 20171129
  Receipt Date: 20171129
  Transmission Date: 20180321
  Serious: Yes (Other)
  Sender: FDA-Public Use
  Company Number: None

PATIENT
  Age: 40 Year
  Sex: Female
  Weight: 94.05 kg

DRUGS (7)
  1. METFORMIN [Concomitant]
     Active Substance: METFORMIN HYDROCHLORIDE
  2. OMEPRAZOLE. [Concomitant]
     Active Substance: OMEPRAZOLE
  3. KLONOPIN [Concomitant]
     Active Substance: CLONAZEPAM
  4. NORCO [Concomitant]
     Active Substance: ACETAMINOPHEN\HYDROCODONE BITARTRATE
  5. HYDROCODONE -ACETAMIN [Suspect]
     Active Substance: ACETAMINOPHEN\HYDROCODONE BITARTRATE
     Indication: PAIN
     Dosage: ?          QUANTITY:180 TABLET(S);?
     Route: 048
     Dates: start: 20171116, end: 20171120
  6. ALBUTEROL. [Concomitant]
     Active Substance: ALBUTEROL
  7. SEROQUEL [Concomitant]
     Active Substance: QUETIAPINE FUMARATE

REACTIONS (6)
  - Panic disorder [None]
  - Chest pain [None]
  - Feeling abnormal [None]
  - Mydriasis [None]
  - Malaise [None]
  - Hypoaesthesia [None]

NARRATIVE: CASE EVENT DATE: 20171117
